FAERS Safety Report 6269967-3 (Version None)
Quarter: 2009Q3

REPORT INFORMATION
  Report Type: 
  Country: None (occurrence: None)
  Receive Date: 20090716
  Receipt Date: 20090624
  Transmission Date: 20100115
  Serious: Yes (Hospitalization, Other)
  Sender: FDA-Public Use
  Company Number: PHHY2009MX21469

PATIENT
  Age: 81 Year
  Sex: Female

DRUGS (6)
  1. EXFORGE [Suspect]
     Indication: HYPERTENSION
     Dosage: 1 TABLETS (160/5 MG) PER DAY
     Route: 048
     Dates: start: 20090201
  2. EXFORGE [Suspect]
     Dosage: UNK
  3. BISOPROLOL FUMARATE [Concomitant]
  4. SAMYR (ADEMETIONINE) [Concomitant]
  5. SPIRONOLACTONE [Concomitant]
  6. PANTOPRAZOLE SODIUM [Concomitant]

REACTIONS (4)
  - HEPATITIS C [None]
  - JAUNDICE [None]
  - OEDEMA PERIPHERAL [None]
  - YELLOW SKIN [None]
